FAERS Safety Report 9697902 (Version 1)
Quarter: 2013Q4

REPORT INFORMATION
  Report Type: Spontaneous
  Country: US (occurrence: US)
  Receive Date: 20131120
  Receipt Date: 20131120
  Transmission Date: 20140711
  Serious: Yes (Other)
  Sender: FDA-Public Use
  Company Number: US-SHIRE-ALL1-2013-07998

PATIENT
  Age: 57 Year
  Sex: Male
  Weight: 77.1 kg

DRUGS (3)
  1. LIALDA [Suspect]
     Indication: COLITIS ULCERATIVE
     Dosage: 2.4 G (2 1.2G TABLETS IN THE MORNING AND 2 1.2G TABLETS IN EVENING), 2X/DAY:BID
     Route: 048
     Dates: start: 201306
  2. CLARITIN                           /00413701/ [Concomitant]
     Indication: SEASONAL ALLERGY
     Dosage: UNK, AS REQ^D
     Route: 065
     Dates: start: 2010
  3. ADVAIR [Concomitant]
     Indication: ASTHMA
     Dosage: UNK, AS REQ^D
     Route: 065
     Dates: start: 2008

REACTIONS (4)
  - Plasma cell myeloma [Not Recovered/Not Resolved]
  - Hypergammaglobulinaemia benign monoclonal [Not Recovered/Not Resolved]
  - Paraesthesia [Not Recovered/Not Resolved]
  - Drug prescribing error [Not Recovered/Not Resolved]
